FAERS Safety Report 22853986 (Version 2)
Quarter: 2024Q1

REPORT INFORMATION
  Report Type: Spontaneous
  Country: US (occurrence: US)
  Receive Date: 20230823
  Receipt Date: 20240218
  Transmission Date: 20240410
  Serious: Yes (Life-Threatening, Hospitalization, Other)
  Sender: FDA-Public Use
  Company Number: US-MLMSERVICE-20230803-4457250-1

PATIENT
  Age: 27 Year
  Sex: Female

DRUGS (5)
  1. AMITRIPTYLINE [Suspect]
     Active Substance: AMITRIPTYLINE
     Indication: Status migrainosus
     Dosage: UNK
     Route: 065
  2. PREDNISONE [Suspect]
     Active Substance: PREDNISONE
     Indication: Status migrainosus
     Dosage: 300 MILLIGRAM (60 MG PER DAY)
     Route: 065
  3. VALPROATE [Suspect]
     Active Substance: VALPROIC ACID
     Indication: Status migrainosus
     Dosage: UNK
     Route: 065
  4. ACETAZOLAMIDE [Concomitant]
     Active Substance: ACETAZOLAMIDE
     Indication: Intracranial pressure increased
     Dosage: UNK
     Route: 065
  5. TOPIRAMATE [Concomitant]
     Active Substance: TOPIRAMATE
     Indication: Status migrainosus
     Dosage: UNK
     Route: 065

REACTIONS (12)
  - Acute chest syndrome [Recovering/Resolving]
  - Fat embolism syndrome [Recovering/Resolving]
  - Numb chin syndrome [Unknown]
  - Brain stem microhaemorrhage [Recovering/Resolving]
  - Cerebral microhaemorrhage [Recovering/Resolving]
  - Multiple organ dysfunction syndrome [Recovering/Resolving]
  - Respiratory failure [Recovering/Resolving]
  - Renal injury [Recovering/Resolving]
  - Hepatocellular injury [Recovering/Resolving]
  - Sickle cell anaemia with crisis [Recovering/Resolving]
  - Cerebellar microhaemorrhage [Recovering/Resolving]
  - Drug ineffective [Unknown]
